FAERS Safety Report 6536876-1 (Version None)
Quarter: 2010Q1

REPORT INFORMATION
  Report Type: 
  Country: None (occurrence: None)
  Receive Date: 20100113
  Receipt Date: 20100104
  Transmission Date: 20100710
  Serious: Yes (Hospitalization)
  Sender: FDA-Public Use
  Company Number: FR-GILEAD-2009-0025839

PATIENT
  Age: 47 Year
  Sex: Male
  Weight: 60 kg

DRUGS (6)
  1. ATRIPLA [Suspect]
     Indication: HIV INFECTION
     Route: 048
     Dates: start: 20090907, end: 20091103
  2. TRUVADA [Concomitant]
     Indication: HIV INFECTION
     Dates: end: 20090907
  3. TRUVADA [Concomitant]
     Dates: start: 20091103
  4. SUSTIVA [Concomitant]
     Indication: HIV INFECTION
     Dates: end: 20090907
  5. SUSTIVA [Concomitant]
     Dates: start: 20091103
  6. ROCEPHIN [Concomitant]
     Indication: PROSTATITIS
     Dates: end: 20091001

REACTIONS (2)
  - ANAEMIA [None]
  - THROMBOCYTOPENIA [None]
